FAERS Safety Report 7431078-9 (Version None)
Quarter: 2011Q2

REPORT INFORMATION
  Report Type: 
  Country: None (occurrence: None)
  Receive Date: 20110421
  Receipt Date: 20110411
  Transmission Date: 20111010
  Serious: Yes (Hospitalization)
  Sender: FDA-Public Use
  Company Number: US-ELI_LILLY_AND_COMPANY-US201008006674

PATIENT
  Sex: Male
  Weight: 59.41 kg

DRUGS (4)
  1. FORTEO [Suspect]
     Indication: OSTEOPOROSIS
     Dosage: 20 UG, DAILY (1/D)
     Dates: start: 20100811
  2. FORTEO [Suspect]
     Dosage: 20 UG, DAILY (1/D)
  3. FUROSEMIDE [Interacting]
     Dosage: UNK, UNKNOWN
  4. COREG [Concomitant]

REACTIONS (6)
  - BLOOD CALCIUM INCREASED [None]
  - POLYP COLORECTAL [None]
  - DRUG INTERACTION [None]
  - CARDIAC FAILURE CONGESTIVE [None]
  - CONSTIPATION [None]
  - COLONOSCOPY [None]
